FAERS Safety Report 24762184 (Version 2)
Quarter: 2025Q4

REPORT INFORMATION
  Report Type: Spontaneous
  Country: CA (occurrence: CA)
  Receive Date: 20241221
  Receipt Date: 20251018
  Transmission Date: 20260117
  Serious: Yes (Life-Threatening, Hospitalization, Other)
  Sender: ABBVIE
  Company Number: CA-LUNDBECK-DKLU3033818

PATIENT
  Age: 52 Year
  Sex: Male

DRUGS (24)
  1. CIPRALEX [Suspect]
     Active Substance: ESCITALOPRAM OXALATE
     Indication: Depression
     Dosage: OVERDOSE: 140 MILLIGRAM
     Route: 048
  2. CIPRALEX [Suspect]
     Active Substance: ESCITALOPRAM OXALATE
     Indication: Depression
     Dosage: 10 MILLIGRAM
     Route: 048
  3. MORPHINE SULFATE [Interacting]
     Active Substance: MORPHINE SULFATE
     Indication: Depression
     Dosage: 30 MILLIGRAM
     Route: 048
  4. MORPHINE SULFATE [Interacting]
     Active Substance: MORPHINE SULFATE
     Indication: Depression
     Dosage: 420 MILLIGRAM
     Route: 048
  5. MORPHINE SULFATE [Interacting]
     Active Substance: MORPHINE SULFATE
     Indication: Depression
     Dosage: 30 MILLIGRAM
     Route: 048
  6. MORPHINE SULFATE [Interacting]
     Active Substance: MORPHINE SULFATE
     Indication: Depression
     Route: 048
  7. MORPHINE SULFATE [Interacting]
     Active Substance: MORPHINE SULFATE
     Indication: Depression
     Dosage: 9500 MILLIGRAM
     Route: 048
  8. MORPHINE SULFATE [Interacting]
     Active Substance: MORPHINE SULFATE
     Indication: Depression
     Dosage: 15 MILLIGRAM
     Route: 048
  9. MORPHINE SULFATE [Interacting]
     Active Substance: MORPHINE SULFATE
     Indication: Depression
     Dosage: 2640 MILLIGRAM
     Route: 048
  10. MORPHINE SULFATE [Interacting]
     Active Substance: MORPHINE SULFATE
     Indication: Depression
     Dosage: 100 MILLIGRAM
     Route: 048
  11. ZOPICLONE [Interacting]
     Active Substance: ZOPICLONE
     Indication: Insomnia
     Dosage: 15 MILLIGRAM
     Route: 048
  12. ZOPICLONE [Interacting]
     Active Substance: ZOPICLONE
     Indication: Insomnia
     Dosage: 187.5 MILLIGRAM
     Route: 048
  13. ZOPICLONE [Interacting]
     Active Substance: ZOPICLONE
     Indication: Insomnia
     Dosage: 7.5 MILLIGRAM
     Route: 048
  14. DIAZEPAM [Interacting]
     Active Substance: DIAZEPAM
     Indication: Spinal stenosis
     Dosage: 1800 MILLIGRAM
     Route: 048
  15. DIAZEPAM [Interacting]
     Active Substance: DIAZEPAM
     Indication: Spinal stenosis
     Dosage: 10 MILLIGRAM
     Route: 048
  16. DIAZEPAM [Interacting]
     Active Substance: DIAZEPAM
     Indication: Spinal stenosis
     Route: 048
  17. ACETAMINOPHEN\OXYCODONE HYDROCHLORIDE [Interacting]
     Active Substance: ACETAMINOPHEN\OXYCODONE HYDROCHLORIDE
     Indication: Product used for unknown indication
     Route: 048
  18. CITALOPRAM [Interacting]
     Active Substance: CITALOPRAM
     Indication: Product used for unknown indication
     Dosage: OVERDOSE : UNKNOWN DOSE
     Route: 048
  19. OXYCODONE HYDROCHLORIDE [Interacting]
     Active Substance: OXYCODONE HYDROCHLORIDE
     Indication: Spinal stenosis
     Dosage: 20 MILLIGRAM
     Route: 048
  20. OXYCODONE HYDROCHLORIDE [Interacting]
     Active Substance: OXYCODONE HYDROCHLORIDE
     Indication: Spinal stenosis
     Dosage: 10 MILLIGRAM
     Route: 048
  21. OXYCODONE HYDROCHLORIDE [Interacting]
     Active Substance: OXYCODONE HYDROCHLORIDE
     Indication: Spinal stenosis
     Route: 048
  22. LORAZEPAM [Interacting]
     Active Substance: LORAZEPAM
     Indication: Insomnia
     Dosage: 30 MILLIGRAM
     Route: 048
  23. LORAZEPAM [Interacting]
     Active Substance: LORAZEPAM
     Indication: Insomnia
     Dosage: 1 MILLIGRAM
     Route: 048
  24. ALTACE [Interacting]
     Active Substance: RAMIPRIL
     Indication: Product used for unknown indication
     Route: 065

REACTIONS (22)
  - Blood creatinine increased [Recovered/Resolved]
  - Drug screen positive [Recovered/Resolved]
  - Loss of consciousness [Recovered/Resolved]
  - Electrocardiogram abnormal [Recovered/Resolved]
  - Intentional overdose [Recovered/Resolved]
  - Blood potassium increased [Recovered/Resolved]
  - Oxygen saturation decreased [Recovered/Resolved]
  - Blood pressure decreased [Recovered/Resolved]
  - Overdose [Recovered/Resolved]
  - Bradycardia [Recovered/Resolved]
  - Drug interaction [Recovered/Resolved]
  - Mechanical ventilation [Recovered/Resolved]
  - Suicide attempt [Recovered/Resolved]
  - Hyperkalaemia [Recovered/Resolved]
  - Electrocardiogram QT prolonged [Recovered/Resolved]
  - Hypotension [Recovered/Resolved]
  - Coma [Recovered/Resolved]
  - Heart rate decreased [Recovered/Resolved]
  - Opiates positive [Recovered/Resolved]
  - Sinus tachycardia [Recovered/Resolved]
  - Blood creatine phosphokinase increased [Recovered/Resolved]
  - Coma scale abnormal [Recovered/Resolved]
